FAERS Safety Report 5937253-4 (Version None)
Quarter: 2008Q4

REPORT INFORMATION
  Report Type: 
  Country: None (occurrence: None)
  Receive Date: 20081031
  Receipt Date: 20081016
  Transmission Date: 20090506
  Serious: Yes (Hospitalization)
  Sender: FDA-Public Use
  Company Number: US-JNJFOC-20080905030

PATIENT
  Sex: Female
  Weight: 115.67 kg

DRUGS (9)
  1. ORTHO TRI-CYCLEN LO [Suspect]
     Indication: ACNE
     Route: 048
  2. ORTHO TRI-CYCLEN LO [Suspect]
     Indication: CONTRACEPTION
     Route: 048
  3. DEPO-PROVERA [Suspect]
     Indication: CONTRACEPTION
     Route: 065
  4. SINGULAIR [Concomitant]
     Indication: RHINITIS ALLERGIC
     Route: 048
  5. CLARINEX [Concomitant]
     Indication: RHINITIS ALLERGIC
     Route: 048
  6. FLONASE [Concomitant]
     Indication: RHINITIS ALLERGIC
     Route: 045
  7. PREVACID [Concomitant]
     Indication: GASTROOESOPHAGEAL REFLUX DISEASE
     Route: 048
  8. DICLOXACILLIN [Concomitant]
     Route: 065
  9. MOTRIN [Concomitant]
     Route: 065

REACTIONS (6)
  - CONSTIPATION [None]
  - DEEP VEIN THROMBOSIS [None]
  - HAEMORRHOIDS [None]
  - NAUSEA [None]
  - OFF LABEL USE [None]
  - VAGINAL DISCHARGE [None]
